FAERS Safety Report 8008445-8 (Version None)
Quarter: 2011Q4

REPORT INFORMATION
  Report Type: 
  Country: None (occurrence: None)
  Receive Date: 20111227
  Receipt Date: 20111214
  Transmission Date: 20120403
  Serious: Yes (Hospitalization, Disabling)
  Sender: FDA-Public Use
  Company Number: DE-ROCHE-1025407

PATIENT
  Sex: Male
  Weight: 83 kg

DRUGS (3)
  1. COPEGUS [Suspect]
     Indication: HEPATITIS C
     Route: 048
     Dates: start: 20110802
  2. PEGINTERFERON ALFA-2A [Suspect]
     Indication: HEPATITIS C
     Route: 058
     Dates: start: 20110802
  3. BLINDED BI 201335 (HCV PROTEASE INHIBITOR) [Suspect]
     Indication: HEPATITIS C
     Route: 048
     Dates: start: 20110802

REACTIONS (1)
  - PERIPHERAL ARTERIAL OCCLUSIVE DISEASE [None]
